FAERS Safety Report 11809796 (Version 1)
Quarter: 2015Q4

REPORT INFORMATION
  Report Type: Spontaneous
  Country: JP (occurrence: JP)
  Receive Date: 20151208
  Receipt Date: 20151208
  Transmission Date: 20160305
  Serious: Yes (Other)
  Sender: FDA-Public Use
  Company Number: JP-CIPLA LTD.-2015JP09052

PATIENT

DRUGS (6)
  1. IRINOTECAN [Suspect]
     Active Substance: IRINOTECAN
     Indication: COLON CANCER RECURRENT
     Route: 065
  2. LEUCOVORIN (FOLINIC ACID) [Suspect]
     Active Substance: LEUCOVORIN
     Indication: COLON CANCER RECURRENT
     Route: 065
  3. LEUCOVORIN (FOLINIC ACID) [Suspect]
     Active Substance: LEUCOVORIN
     Dosage: UNK
     Route: 065
  4. OXALIPLATIN. [Suspect]
     Active Substance: OXALIPLATIN
     Indication: COLON CANCER RECURRENT
     Route: 065
  5. FLUOROURACIL. [Suspect]
     Active Substance: FLUOROURACIL
     Dosage: UNK
     Route: 065
  6. FLUOROURACIL. [Suspect]
     Active Substance: FLUOROURACIL
     Indication: COLON CANCER RECURRENT
     Dosage: 400 MG/M2, CONTINUOUS INTRAVENOUS INFUSION 2,400 /M2
     Route: 042

REACTIONS (5)
  - Cognitive disorder [Unknown]
  - Encephalopathy [Recovered/Resolved]
  - Hyperammonaemia [Unknown]
  - Confusional state [Unknown]
  - Seizure [Unknown]
